FAERS Safety Report 6410190-7 (Version None)
Quarter: 2009Q4

REPORT INFORMATION
  Report Type: 
  Country: None (occurrence: None)
  Receive Date: 20091022
  Receipt Date: 20080825
  Transmission Date: 20100525
  Serious: Yes (Other)
  Sender: FDA-Public Use
  Company Number: PHHY2008US20164

PATIENT
  Sex: Male
  Weight: 77 kg

DRUGS (2)
  1. EXJADE [Suspect]
     Indication: HAEMOCHROMATOSIS
     Dosage: 750 MG, QD
     Route: 048
     Dates: start: 20080823, end: 20080903
  2. EXJADE [Suspect]
     Indication: IRON METABOLISM DISORDER

REACTIONS (5)
  - DYSPNOEA [None]
  - LIVER DISORDER [None]
  - PHARYNGEAL OEDEMA [None]
  - PRODUCT TASTE ABNORMAL [None]
  - RENAL DISORDER [None]
